FAERS Safety Report 21391243 (Version 1)
Quarter: 2022Q3

REPORT INFORMATION
  Report Type: Spontaneous
  Country: US (occurrence: None)
  Receive Date: 20220927
  Receipt Date: 20220927
  Transmission Date: 20221026
  Serious: Yes (unspecified)
  Sender: FDA-Public Use
  Company Number: None

PATIENT
  Age: 56 Year
  Sex: Female

DRUGS (22)
  1. BELBUCA [Suspect]
     Active Substance: BUPRENORPHINE HYDROCHLORIDE
     Dates: start: 20211001, end: 20220601
  2. CYMBALTA [Concomitant]
     Active Substance: DULOXETINE HYDROCHLORIDE
  3. METHOTREXATE [Concomitant]
     Active Substance: METHOTREXATE
  4. AZATHIOPRINE [Concomitant]
     Active Substance: AZATHIOPRINE
  5. HYDROXYCHLOROQUINE [Concomitant]
     Active Substance: HYDROXYCHLOROQUINE
  6. LISINOPRIL [Concomitant]
     Active Substance: LISINOPRIL
  7. LIDOCAINE [Concomitant]
     Active Substance: LIDOCAINE
  8. BREO ELLIPTA [Concomitant]
     Active Substance: FLUTICASONE FUROATE\VILANTEROL TRIFENATATE
  9. VENTOLIN [Concomitant]
     Active Substance: ALBUTEROL SULFATE
  10. Clobetazole oint + solution [Concomitant]
  11. Mydais [Concomitant]
  12. HYDROCODONE [Concomitant]
     Active Substance: HYDROCODONE
  13. LUNESTA [Concomitant]
     Active Substance: ESZOPICLONE
  14. GABAPENTIN [Concomitant]
     Active Substance: GABAPENTIN
  15. Rizatripta [Concomitant]
  16. ALPRAZOLAM [Concomitant]
     Active Substance: ALPRAZOLAM
  17. FLONASE [Concomitant]
     Active Substance: FLUTICASONE PROPIONATE
  18. ZYRTEC [Concomitant]
     Active Substance: CETIRIZINE HYDROCHLORIDE
  19. VITAMIN D [Concomitant]
     Active Substance: VITAMIN D NOS
  20. PROBIOTICS NOS [Concomitant]
     Active Substance: PROBIOTICS NOS
  21. Omega [Concomitant]
  22. PRILOSEC [Concomitant]
     Active Substance: OMEPRAZOLE MAGNESIUM

REACTIONS (3)
  - Tooth loss [None]
  - Tooth fracture [None]
  - Cellulitis [None]

NARRATIVE: CASE EVENT DATE: 20220701
